FAERS Safety Report 16249948 (Version 3)
Quarter: 2020Q1

REPORT INFORMATION
  Report Type: Spontaneous
  Country: CO (occurrence: CO)
  Receive Date: 20190429
  Receipt Date: 20200324
  Transmission Date: 20200409
  Serious: Yes (Hospitalization, Other)
  Sender: FDA-Public Use
  Company Number: CO-JNJFOC-20190439295

PATIENT
  Age: 84 Year
  Sex: Male

DRUGS (11)
  1. RIVAROXABAN [Suspect]
     Active Substance: RIVAROXABAN
     Indication: ATRIAL FIBRILLATION
     Dosage: 20 MG
     Route: 048
     Dates: start: 201806, end: 201904
  2. ACETAMINOPHEN. [Concomitant]
     Active Substance: ACETAMINOPHEN
     Dosage: 1 G, Q8HR
  3. ROSUVASTATIN. [Concomitant]
     Active Substance: ROSUVASTATIN
     Dosage: 1 DF, QD
  4. BETOPROLOL [Concomitant]
     Dosage: 50 MG, QD
  5. ALENDRONATE SODIUM. [Concomitant]
     Active Substance: ALENDRONATE SODIUM
     Dosage: UNK
  6. ENOXAPARIN [Concomitant]
     Active Substance: ENOXAPARIN
  7. RIVAROXABAN [Suspect]
     Active Substance: RIVAROXABAN
     Dosage: 15 UNK
     Route: 048
  8. OMEPRAZOLE. [Concomitant]
     Active Substance: OMEPRAZOLE
     Dosage: 20 MG, QD
  9. FENOFIBRIC ACID. [Concomitant]
     Active Substance: FENOFIBRIC ACID
     Dosage: UNK
  10. RIVAROXABAN [Suspect]
     Active Substance: RIVAROXABAN
     Dosage: 15 MG, QD
     Route: 048
  11. ALENDRONATE SODIUM. [Concomitant]
     Active Substance: ALENDRONATE SODIUM
     Dosage: UNK

REACTIONS (33)
  - Blood creatinine abnormal [Unknown]
  - Haemoglobin decreased [Recovered/Resolved]
  - Myalgia [Not Recovered/Not Resolved]
  - Neck pain [Unknown]
  - Gastric disorder [Unknown]
  - Pallor [Unknown]
  - Duodenal ulcer [Unknown]
  - Coagulation time prolonged [Unknown]
  - Haematemesis [Unknown]
  - Cardiomyopathy [Unknown]
  - Activated partial thromboplastin time prolonged [Unknown]
  - Blood urea increased [Unknown]
  - Anaemia [Unknown]
  - Haemodynamic instability [Unknown]
  - International normalised ratio increased [Unknown]
  - Haemodynamic instability [Unknown]
  - Duodenal stenosis [Unknown]
  - Haemorrhage [Unknown]
  - Polyneuropathy [Unknown]
  - Hypovolaemic shock [Unknown]
  - Melaena [Unknown]
  - Syncope [Recovered/Resolved]
  - Myocardial reperfusion injury [Unknown]
  - Gastrointestinal haemorrhage [Unknown]
  - Diverticulum [Unknown]
  - Hyperhidrosis [Unknown]
  - Upper gastrointestinal haemorrhage [Unknown]
  - Blood loss anaemia [Recovering/Resolving]
  - Blood pressure decreased [Unknown]
  - Angina pectoris [Unknown]
  - Haematocrit abnormal [Recovered/Resolved]
  - Uterine spasm [Unknown]
  - Hypotension [Unknown]

NARRATIVE: CASE EVENT DATE: 20190329
